FAERS Safety Report 26072449 (Version 1)
Quarter: 2025Q4

REPORT INFORMATION
  Report Type: Spontaneous
  Country: US (occurrence: US)
  Receive Date: 20251120
  Receipt Date: 20251120
  Transmission Date: 20260118
  Serious: Yes (Hospitalization)
  Sender: NOVO NORDISK
  Company Number: US-NOVOPROD-1503170

PATIENT
  Age: 47 Year
  Sex: Male

DRUGS (1)
  1. FIASP [Suspect]
     Active Substance: INSULIN ASPART
     Indication: Diabetes mellitus
     Dosage: 12 IU, BID
     Route: 058
     Dates: start: 20250808

REACTIONS (1)
  - Hypoglycaemic unconsciousness [Recovering/Resolving]

NARRATIVE: CASE EVENT DATE: 20250812
